FAERS Safety Report 5856136-1 (Version None)
Quarter: 2008Q3

REPORT INFORMATION
  Report Type: 
  Country: None (occurrence: None)
  Receive Date: 20080821
  Receipt Date: 20080807
  Transmission Date: 20090109
  Serious: Yes (Hospitalization)
  Sender: FDA-Public Use
  Company Number: APP20080739

PATIENT
  Age: 51 Year
  Sex: Male

DRUGS (7)
  1. NEBUPENT [Suspect]
     Indication: ANTIFUNGAL PROPHYLAXIS
     Dosage: INHALATION
     Route: 055
     Dates: start: 20060510
  2. AZITHROMYCIN [Suspect]
     Indication: OPPORTUNISTIC INFECTION PROPHYLAXIS
     Dosage: 1200 MG, 1 IN 1 WK, ORAL
     Route: 048
     Dates: start: 20060302
  3. EPIVIR [Suspect]
     Indication: HIV INFECTION
     Dosage: ORAL
     Route: 048
     Dates: start: 20060522
  4. GANCICLOVIR [Suspect]
     Indication: CYTOMEGALOVIRUS CHORIORETINITIS
     Dosage: INTRAOCULAR
     Route: 031
     Dates: start: 20070222, end: 20070322
  5. VALGANCICLOVIR HCL [Suspect]
     Indication: DRUG USE FOR UNKNOWN INDICATION
     Dosage: ORAL
     Route: 048
     Dates: start: 20070323, end: 20070327
  6. ZERIT [Concomitant]
  7. EFAVIRENZ [Concomitant]

REACTIONS (2)
  - BONE MARROW FAILURE [None]
  - MYCOBACTERIUM AVIUM COMPLEX INFECTION [None]
